FAERS Safety Report 11647573 (Version 1)
Quarter: 2015Q4

REPORT INFORMATION
  Report Type: Spontaneous
  Country: US (occurrence: None)
  Receive Date: 20151020
  Receipt Date: 20151020
  Transmission Date: 20160304
  Serious: Yes (Other)
  Sender: FDA-Public Use
  Company Number: None

PATIENT
  Age: 67 Year
  Sex: Female
  Weight: 74.84 kg

DRUGS (9)
  1. PROBIOTIC [Concomitant]
     Active Substance: PROBIOTICS NOS
  2. ASPIRIN. [Concomitant]
     Active Substance: ASPIRIN
  3. VITAMIN D3 [Concomitant]
     Active Substance: CHOLECALCIFEROL
  4. LISINOPRIL. [Suspect]
     Active Substance: LISINOPRIL
     Indication: BLOOD PRESSURE MEASUREMENT
     Route: 048
     Dates: start: 20150523
  5. METAPROLOL TARTRATE [Suspect]
     Active Substance: METOPROLOL TARTRATE
     Indication: BLOOD PRESSURE MEASUREMENT
     Route: 048
     Dates: start: 20150523
  6. PLAVIX [Concomitant]
     Active Substance: CLOPIDOGREL BISULFATE
  7. METFORMIN [Suspect]
     Active Substance: METFORMIN HYDROCHLORIDE
     Indication: BLOOD PRESSURE MEASUREMENT
     Route: 048
     Dates: start: 20150523
  8. VITAMIN (COMPLETE) [Concomitant]
  9. FISH OIL [Concomitant]
     Active Substance: FISH OIL

REACTIONS (20)
  - Abdominal pain upper [None]
  - Constipation [None]
  - Nausea [None]
  - Myalgia [None]
  - Diarrhoea [None]
  - Pyrexia [None]
  - Asthenia [None]
  - Muscle spasms [None]
  - Pelvic pain [None]
  - Dry mouth [None]
  - Gastritis [None]
  - Cough [None]
  - Rash [None]
  - Fatigue [None]
  - Dizziness [None]
  - Infection [None]
  - Oropharyngeal pain [None]
  - Choking [None]
  - Back pain [None]
  - Chills [None]

NARRATIVE: CASE EVENT DATE: 20150524
